FAERS Safety Report 5926828-4 (Version None)
Quarter: 2008Q4

REPORT INFORMATION
  Report Type: 
  Country: None (occurrence: None)
  Receive Date: 20081017
  Receipt Date: 20081007
  Transmission Date: 20090506
  Serious: Yes (Hospitalization)
  Sender: FDA-Public Use
  Company Number: 2008BI026752

PATIENT
  Sex: Female

DRUGS (3)
  1. AVONEX [Suspect]
     Indication: MULTIPLE SCLEROSIS
     Dosage: IM
     Route: 030
     Dates: start: 19980101, end: 20070101
  2. . [Concomitant]
  3. . [Concomitant]

REACTIONS (3)
  - ARTHRITIS [None]
  - ARTHRITIS INFECTIVE [None]
  - SPINAL COLUMN STENOSIS [None]
